FAERS Safety Report 24179954 (Version 1)
Quarter: 2024Q3

REPORT INFORMATION
  Report Type: Spontaneous
  Country: CN (occurrence: CN)
  Receive Date: 20240806
  Receipt Date: 20240806
  Transmission Date: 20241017
  Serious: Yes (Other)
  Sender: SANDOZ
  Company Number: CN-002147023-NVSC2024CN158018

PATIENT
  Age: 88 Year
  Sex: Female
  Weight: 60 kg

DRUGS (1)
  1. DEXAMETHASONE\TOBRAMYCIN [Suspect]
     Active Substance: DEXAMETHASONE\TOBRAMYCIN
     Indication: Cataract
     Dosage: 0.05 ML, QID
     Route: 047
     Dates: start: 20240612, end: 20240712

REACTIONS (3)
  - Corneal exfoliation [Recovering/Resolving]
  - Blood glucose increased [Unknown]
  - Keratitis [Unknown]

NARRATIVE: CASE EVENT DATE: 20240617
